FAERS Safety Report 25992379 (Version 3)
Quarter: 2025Q4

REPORT INFORMATION
  Report Type: Spontaneous
  Country: AR (occurrence: AR)
  Receive Date: 20251103
  Receipt Date: 20251112
  Transmission Date: 20260118
  Serious: No
  Sender: PFIZER
  Company Number: AR-PFIZER INC-202500215689

PATIENT
  Age: 11 Year
  Sex: Male

DRUGS (2)
  1. GENOTROPIN [Suspect]
     Active Substance: SOMATROPIN
     Indication: Foetal growth restriction
     Dosage: 1.6 MG, DAILY
     Dates: start: 20250929
  2. DECAPEPTYL [Concomitant]

REACTIONS (3)
  - Device difficult to use [Unknown]
  - Device leakage [Unknown]
  - Product communication issue [Unknown]

NARRATIVE: CASE EVENT DATE: 20251024
